FAERS Safety Report 17568584 (Version 5)
Quarter: 2022Q3

REPORT INFORMATION
  Report Type: Spontaneous
  Country: US (occurrence: US)
  Receive Date: 20200320
  Receipt Date: 20220708
  Transmission Date: 20221027
  Serious: No
  Sender: FDA-Public Use
  Company Number: US-VERTEX PHARMACEUTICALS-2020-005482

PATIENT
  Sex: Female
  Weight: 42 kg

DRUGS (37)
  1. TRIKAFTA [Suspect]
     Active Substance: ELEXACAFTOR\IVACAFTOR\TEZACAFTOR
     Indication: Cystic fibrosis
     Dosage: 2 TABS (100MG ELEXACAFTOR/50MG TEZACAFTOR/75MG IVACAFTOR) AM AND 1 TAB (150MG IVACAFTOR) PM
     Route: 048
     Dates: start: 20200217, end: 20200313
  2. TRIKAFTA [Suspect]
     Active Substance: ELEXACAFTOR\IVACAFTOR\TEZACAFTOR
     Dosage: 2 TABS (100MG ELEXACAFTOR/50MG TEZACAFTOR/75MG IVACAFTOR) AM AND 1 TAB (150MG IVACAFTOR) PM
     Route: 048
     Dates: start: 20200416
  3. CIPRO [Suspect]
     Active Substance: CIPROFLOXACIN HYDROCHLORIDE
     Indication: Illness
     Dosage: UNK
     Route: 065
     Dates: start: 20200227
  4. CIPRO [Suspect]
     Active Substance: CIPROFLOXACIN HYDROCHLORIDE
     Indication: Pneumonia
  5. ARMOUR THYROID [Concomitant]
     Active Substance: THYROID, PORCINE
  6. FLUTICASONE [Concomitant]
     Active Substance: FLUTICASONE
  7. GENTAMICIN [Concomitant]
     Active Substance: GENTAMICIN
  8. KRILL OIL [Concomitant]
     Active Substance: DIETARY SUPPLEMENT\KRILL OIL
  9. ALBUTEROL\IPRATROPIUM [Concomitant]
     Active Substance: ALBUTEROL\IPRATROPIUM
  10. LIOTHYRONINE [Concomitant]
     Active Substance: LIOTHYRONINE
  11. LORATADINE [Concomitant]
     Active Substance: LORATADINE
  12. MAGNESIUM [Concomitant]
     Active Substance: MAGNESIUM
     Dosage: 100 MG CAPSULE
  13. SODIUM CHLORIDE [Concomitant]
     Active Substance: SODIUM CHLORIDE
  14. VITAMIN D [Concomitant]
     Active Substance: VITAMIN D NOS
  15. OMEGA-3 ACIDS [Concomitant]
     Active Substance: OMEGA-3 FATTY ACIDS
  16. DUONEB [Concomitant]
     Active Substance: ALBUTEROL SULFATE\IPRATROPIUM BROMIDE
  17. VITAMIN B COMPLEX [Concomitant]
     Active Substance: CYANOCOBALAMIN\DEXPANTHENOL\NIACINAMIDE\PYRIDOXINE HYDROCHLORIDE\RIBOFLAVIN 5^-PHOSPHATE SODIUM\THIA
  18. AZITHROMYCIN [Concomitant]
     Active Substance: AZITHROMYCIN
     Dosage: 500 UNK
  19. HYDROXYZINE [Concomitant]
     Active Substance: HYDROXYZINE HYDROCHLORIDE
     Dosage: UNK
  20. TOBRAMYCIN [Concomitant]
     Active Substance: TOBRAMYCIN
     Dosage: INHATION SOLUTION
  21. HYDROXYCHLOROQUINE SULFATE [Concomitant]
     Active Substance: HYDROXYCHLOROQUINE SULFATE
  22. CURCUMIN [Concomitant]
     Active Substance: CURCUMIN
     Dosage: POWDER
  23. COENZYME Q10 [Concomitant]
     Active Substance: DIETARY SUPPLEMENT\UBIDECARENONE
     Dosage: CAPSULE
  24. GLUCOSAMINE [Concomitant]
     Active Substance: GLUCOSAMINE
  25. ZINC [Concomitant]
     Active Substance: ZINC
     Dosage: 15 (66 MG) TABLET
  26. BIOTIN [Concomitant]
     Active Substance: BIOTIN
     Dosage: TABLET
  27. DIETARY SUPPLEMENT\HERBALS\MILK THISTLE [Concomitant]
     Active Substance: DIETARY SUPPLEMENT\HERBALS\MILK THISTLE
     Dosage: CAPSULE
  28. FISH OIL [Concomitant]
     Active Substance: FISH OIL
     Dosage: 100-150 MG CAPSULE
  29. IRON [Concomitant]
     Active Substance: IRON
     Dosage: TABLET
  30. CALCIUM [Concomitant]
     Active Substance: CALCIUM
     Dosage: 500 (1250) TAB CHEW
  31. VITAMIN K [Concomitant]
     Active Substance: PHYTONADIONE
     Dosage: TABLET
  32. VITAMIN E [Concomitant]
     Active Substance: .ALPHA.-TOCOPHEROL
     Dosage: 1000 UNIT CAPSULE
  33. VITAMIN D3 [Concomitant]
     Active Substance: CHOLECALCIFEROL
     Dosage: CAPSULE
  34. VITAMIN C [Concomitant]
     Active Substance: ASCORBIC ACID
     Dosage: TABLET
  35. ALBUTEROL\IPRATROPIUM [Concomitant]
     Active Substance: ALBUTEROL\IPRATROPIUM
  36. LIOTHYRONINE SODIUM [Concomitant]
     Active Substance: LIOTHYRONINE SODIUM
     Dosage: CAPSULE
  37. LEVOTHYROXINE [Concomitant]
     Active Substance: LEVOTHYROXINE
     Dosage: CAPSULE

REACTIONS (14)
  - Abdominal discomfort [Unknown]
  - Illness [Unknown]
  - Cough [Recovered/Resolved]
  - Nocardiosis [Unknown]
  - Feeling abnormal [Unknown]
  - Nausea [Not Recovered/Not Resolved]
  - Fatigue [Unknown]
  - Vomiting [Unknown]
  - Pneumonia [Unknown]
  - Pyrexia [Recovered/Resolved]
  - Decreased appetite [Not Recovered/Not Resolved]
  - Dizziness [Unknown]
  - Pruritus [Recovering/Resolving]
  - Urticaria [Unknown]

NARRATIVE: CASE EVENT DATE: 20200101
